FAERS Safety Report 24883212 (Version 1)
Quarter: 2025Q1

REPORT INFORMATION
  Report Type: Spontaneous
  Country: US (occurrence: None)
  Receive Date: 20250123
  Receipt Date: 20250123
  Transmission Date: 20250409
  Serious: Yes (unspecified)
  Sender: FDA-CTU
  Company Number: None

PATIENT
  Age: 61 Year
  Sex: Female
  Weight: 82.35 kg

DRUGS (4)
  1. SEMAGLUTIDE [Suspect]
     Active Substance: SEMAGLUTIDE
     Indication: Obesity
     Route: 058
     Dates: start: 20250117, end: 20250117
  2. VITAMINS [Concomitant]
     Active Substance: VITAMINS
  3. GARLIC [Concomitant]
     Active Substance: GARLIC
  4. ZYRTEC [Concomitant]
     Active Substance: CETIRIZINE HYDROCHLORIDE

REACTIONS (4)
  - Incorrect dose administered [None]
  - Vomiting [None]
  - Diarrhoea [None]
  - Product communication issue [None]

NARRATIVE: CASE EVENT DATE: 20250118
